FAERS Safety Report 5491795-7 (Version None)
Quarter: 2007Q4

REPORT INFORMATION
  Report Type: 
  Country: None (occurrence: None)
  Receive Date: 20071018
  Receipt Date: 20071018
  Transmission Date: 20080405
  Serious: No
  Sender: FDA-Public Use
  Company Number: None

PATIENT
  Age: 40 Year
  Sex: Female

DRUGS (2)
  1. ZOLPIDEM [Suspect]
     Indication: INSOMNIA
     Dosage: 1 TABLET AT BEDTIME
     Dates: start: 20070501
  2. ZOLPIDEM [Suspect]
     Indication: MENOPAUSAL SYMPTOMS
     Dosage: 1 TABLET AT BEDTIME
     Dates: start: 20070501

REACTIONS (5)
  - DRUG INEFFECTIVE [None]
  - INITIAL INSOMNIA [None]
  - NIGHTMARE [None]
  - PHARMACEUTICAL PRODUCT COMPLAINT [None]
  - SOMNOLENCE [None]
